FAERS Safety Report 19261852 (Version 1)
Quarter: 2021Q2

REPORT INFORMATION
  Report Type: Spontaneous
  Country: US (occurrence: US)
  Receive Date: 20210515
  Receipt Date: 20210515
  Transmission Date: 20210717
  Serious: No
  Sender: FDA-Public Use
  Company Number: US-TEVA-2021-US-1903416

PATIENT
  Sex: Male

DRUGS (1)
  1. AJOVY [Suspect]
     Active Substance: FREMANEZUMAB-VFRM
     Dosage: FORM STRENGTH: 225 MG / 1.5 ML
     Route: 065

REACTIONS (3)
  - Therapeutic product effect decreased [Unknown]
  - Wrong technique in device usage process [Unknown]
  - Device delivery system issue [Unknown]
